FAERS Safety Report 9731600 (Version 2)
Quarter: 2013Q4

REPORT INFORMATION
  Report Type: Report from Study
  Country: US (occurrence: US)
  Receive Date: 20131205
  Receipt Date: 20131213
  Transmission Date: 20140711
  Serious: Yes (Hospitalization)
  Sender: FDA-Public Use
  Company Number: US-ROCHE-1312895

PATIENT
  Sex: Male

DRUGS (10)
  1. LUCENTIS [Suspect]
     Indication: RETINAL HAEMORRHAGE
     Dosage: MOST RECENT INJECTION 27-NOV-2013
     Route: 050
     Dates: start: 201308
  2. METFORMIN HYDROCHLORIDE [Concomitant]
     Indication: DIABETES MELLITUS
     Route: 048
  3. NOVOLIN N [Concomitant]
     Indication: DIABETES MELLITUS
     Dosage: SSI, USUALLY IN THE EVENING AFTER DINNER
     Route: 058
  4. NOVOLIN R [Concomitant]
     Indication: DIABETES MELLITUS
     Dosage: SSI, USUALLY IN THE EVENING AFTER DINNER
     Route: 058
  5. VICTOZA [Concomitant]
     Indication: WEIGHT DECREASED
     Route: 058
  6. ASPIRIN [Concomitant]
     Route: 048
  7. GLIMEPIRIDE [Concomitant]
     Indication: DIABETES MELLITUS
     Route: 048
  8. LOVASTATIN [Concomitant]
     Route: 048
  9. LISINOPRIL [Concomitant]
     Route: 048
  10. FUROSEMIDE [Concomitant]
     Route: 048

REACTIONS (3)
  - Limb injury [Recovered/Resolved]
  - Vision blurred [Recovered/Resolved]
  - Injection site pain [Recovered/Resolved]
